FAERS Safety Report 7572736-5 (Version None)
Quarter: 2011Q2

REPORT INFORMATION
  Report Type: 
  Country: None (occurrence: None)
  Receive Date: 20110627
  Receipt Date: 20110613
  Transmission Date: 20111010
  Serious: Yes (Hospitalization)
  Sender: FDA-Public Use
  Company Number: GB-RANBAXY-2011R1-45398

PATIENT
  Age: 70 Year
  Sex: Male

DRUGS (6)
  1. OXYCONTIN [Suspect]
     Indication: PAIN
     Dosage: 20 MG, 2/1 DAYS
     Route: 048
  2. OXYCODONE HCL [Suspect]
     Indication: PAIN
     Dosage: 5 MG, AS NECESSARY
     Route: 048
  3. CODEINE [Suspect]
     Indication: DIARRHOEA
     Dosage: 60 MG, 4/1 DAYS
     Route: 048
     Dates: start: 20110410, end: 20110415
  4. NALOXONE [Suspect]
     Indication: TOXICITY TO VARIOUS AGENTS
     Dosage: UNK
     Route: 042
     Dates: start: 20110315, end: 20110315
  5. ABSTRAL [Suspect]
     Indication: PRODUCT USED FOR UNKNOWN INDICATION
     Route: 060
  6. HALOPERIDOL [Concomitant]
     Indication: ANTIEMETIC SUPPORTIVE CARE
     Dosage: 3 MG, 24 HOURS
     Route: 065

REACTIONS (4)
  - PARAESTHESIA [None]
  - MUSCLE TWITCHING [None]
  - WITHDRAWAL SYNDROME [None]
  - HYPOAESTHESIA [None]
